FAERS Safety Report 11444259 (Version 3)
Quarter: 2015Q3

REPORT INFORMATION
  Report Type: Report from Study
  Country: US (occurrence: US)
  Receive Date: 20150901
  Receipt Date: 20150928
  Transmission Date: 20151125
  Serious: Yes (Other)
  Sender: FDA-Public Use
  Company Number: US-GILEAD-2015-0169859

PATIENT
  Age: 55 Year
  Sex: Female

DRUGS (1)
  1. RANOLAZINE [Suspect]
     Active Substance: RANOLAZINE
     Indication: ANGINA PECTORIS
     Dosage: 500 MG, UNK
     Route: 048

REACTIONS (25)
  - Arterial disorder [Unknown]
  - Fibromyalgia [Unknown]
  - Dysstasia [Unknown]
  - Neuropathy peripheral [Unknown]
  - Pain [Unknown]
  - Amnesia [Unknown]
  - Dyspnoea [Unknown]
  - Gastric operation [Unknown]
  - Gait disturbance [Unknown]
  - Nervousness [Not Recovered/Not Resolved]
  - Joint swelling [Unknown]
  - Stent placement [Unknown]
  - Cardiac operation [Unknown]
  - Chronic obstructive pulmonary disease [Unknown]
  - Muscle spasms [Unknown]
  - Emotional disorder [Unknown]
  - Lung disorder [Unknown]
  - Myocardial infarction [Unknown]
  - Hypertension [Not Recovered/Not Resolved]
  - Crying [Unknown]
  - Systemic lupus erythematosus [Unknown]
  - Depression [Not Recovered/Not Resolved]
  - Gastric ulcer haemorrhage [Not Recovered/Not Resolved]
  - Arthritis [Unknown]
  - Migraine [Not Recovered/Not Resolved]
